FAERS Safety Report 5690380-1 (Version None)
Quarter: 2008Q1

REPORT INFORMATION
  Report Type: 
  Country: None (occurrence: None)
  Receive Date: 20080331
  Receipt Date: 20080331
  Transmission Date: 20080703
  Serious: Yes (Disabling, Other)
  Sender: FDA-Public Use
  Company Number: None

PATIENT
  Age: 13 Year
  Sex: Female
  Weight: 40.8237 kg

DRUGS (1)
  1. SINGULAIR [Suspect]
     Indication: ASTHMA
     Dosage: 1 PILL ONCE PER DAY PO
     Route: 048
     Dates: start: 19980514, end: 20040215

REACTIONS (5)
  - COGNITIVE DISORDER [None]
  - DEPRESSION [None]
  - EDUCATIONAL PROBLEM [None]
  - MENTAL IMPAIRMENT [None]
  - SLEEP DISORDER [None]
